FAERS Safety Report 9299399 (Version 2)
Quarter: 2013Q4

REPORT INFORMATION
  Report Type: Spontaneous
  Country: US (occurrence: US)
  Receive Date: 20130520
  Receipt Date: 20131108
  Transmission Date: 20140711
  Serious: Yes (Hospitalization, Other)
  Sender: FDA-Public Use
  Company Number: US-B.I. PHARMACEUTICALS,INC./RIDGEFIELD-2013-BI-13950BP

PATIENT
  Age: 81 Year
  Sex: Male
  Weight: 86.18 kg

DRUGS (15)
  1. PRADAXA [Suspect]
     Indication: ANTICOAGULANT THERAPY
     Dates: start: 20120428, end: 20120916
  2. ASPIRIN [Concomitant]
     Dosage: 81 MG
     Route: 048
  3. VERAPAMIL [Concomitant]
     Dosage: 180 MG
     Route: 048
  4. JANUVIA [Concomitant]
     Dosage: 50 MG
     Route: 048
  5. LASIX [Concomitant]
     Dosage: 40 MG
     Route: 048
  6. KCL [Concomitant]
     Dosage: 20 MEQ
     Route: 048
  7. SLOW-MAG [Concomitant]
     Dosage: 800 MG
     Route: 048
  8. ALLOPURINOL [Concomitant]
     Dosage: 100 MG
     Route: 048
  9. GLIPIZIDE [Concomitant]
     Dosage: 5 MG
     Route: 048
  10. LEVOTHYROXINE [Concomitant]
     Dosage: 50 MCG
     Route: 048
  11. METFORMIN [Concomitant]
     Dosage: 1000 MCG
     Route: 048
  12. METOPROLOL [Concomitant]
     Dosage: 200 MCG
     Route: 048
  13. OMEPRAZOLE [Concomitant]
     Dosage: 20 MCG
     Route: 048
  14. PRAVASTATIN [Concomitant]
     Dosage: 20 MCG
     Route: 048
  15. RANEXA [Concomitant]
     Dosage: 1000 MCG
     Route: 048

REACTIONS (1)
  - Haematochezia [Recovered/Resolved]
